FAERS Safety Report 22980367 (Version 3)
Quarter: 2023Q4

REPORT INFORMATION
  Report Type: Spontaneous
  Country: AU (occurrence: AU)
  Receive Date: 20230925
  Receipt Date: 20231016
  Transmission Date: 20240109
  Serious: Yes (Hospitalization)
  Sender: FDA-Public Use
  Company Number: AU-GSKCCFAPAC-Case-01812333_AE-75273

PATIENT

DRUGS (1)
  1. FLUTICASONE PROPIONATE [Suspect]
     Active Substance: FLUTICASONE PROPIONATE
     Indication: Asthma
     Dosage: 200 PUFF(S), BID
     Route: 055

REACTIONS (3)
  - Hospitalisation [Recovered/Resolved]
  - Asthma [Unknown]
  - Wrong technique in device usage process [Unknown]
